FAERS Safety Report 17710284 (Version 1)
Quarter: 2020Q2

REPORT INFORMATION
  Report Type: Spontaneous
  Country: DE (occurrence: DE)
  Receive Date: 20200427
  Receipt Date: 20200427
  Transmission Date: 20200714
  Serious: Yes (Disabling, Other)
  Sender: FDA-Public Use
  Company Number: DE-SA-2020SA107693

PATIENT
  Age: 29 Month
  Sex: Female

DRUGS (3)
  1. POLIOMYELITIS VACCINE (INACTIVATED) [Suspect]
     Active Substance: POLIOVIRUS TYPE 1 ANTIGEN (FORMALDEHYDE INACTIVATED)\POLIOVIRUS TYPE 2 ANTIGEN (FORMALDEHYDE INACTIVATED)\POLIOVIRUS TYPE 3 ANTIGEN (FORMALDEHYDE INACTIVATED)
     Indication: IMMUNISATION
     Route: 048
     Dates: start: 19961010
  2. TUBERCULIN PPD [Suspect]
     Active Substance: TUBERCULIN PURIFIED PROTEIN DERIVATIVE
     Indication: TUBERCULIN TEST
     Route: 065
     Dates: start: 19980804
  3. MMR [Suspect]
     Active Substance: MEASLES-MUMPS-RUBELLA VIRUS VACCINE
     Indication: IMMUNISATION
     Route: 065
     Dates: start: 19970116

REACTIONS (6)
  - Dyscalculia [Not Recovered/Not Resolved]
  - Language disorder [Unknown]
  - Incontinence [Unknown]
  - Immunodeficiency [Not Recovered/Not Resolved]
  - Dysgraphia [Not Recovered/Not Resolved]
  - Motor developmental delay [Unknown]

NARRATIVE: CASE EVENT DATE: 19961110
